FAERS Safety Report 6271735-3 (Version None)
Quarter: 2009Q3

REPORT INFORMATION
  Report Type: 
  Country: None (occurrence: None)
  Receive Date: 20090716
  Receipt Date: 20090716
  Transmission Date: 20100115
  Serious: Yes (Other)
  Sender: FDA-Public Use
  Company Number: None

PATIENT
  Age: 27 Year
  Sex: Female
  Weight: 40.8237 kg

DRUGS (1)
  1. CHANTIX [Suspect]
     Indication: SMOKING CESSATION THERAPY
     Dosage: 0.5 MG ONCE/TWICE DAILY PO ; 1 MG TWICE DAILY PO
     Route: 048
     Dates: start: 20090430, end: 20090525

REACTIONS (2)
  - ANGER [None]
  - DEPRESSION [None]
